FAERS Safety Report 25592204 (Version 2)
Quarter: 2025Q3

REPORT INFORMATION
  Report Type: Spontaneous
  Country: GB (occurrence: GB)
  Receive Date: 20250722
  Receipt Date: 20250730
  Transmission Date: 20251020
  Serious: Yes (Death, Life-Threatening, Hospitalization, Other)
  Sender: GILEAD
  Company Number: GB-GILEAD-2025-0721444

PATIENT
  Age: 77 Year
  Sex: Male

DRUGS (1)
  1. TECARTUS [Suspect]
     Active Substance: BREXUCABTAGENE AUTOLEUCEL
     Indication: Mantle cell lymphoma recurrent
     Route: 065
     Dates: start: 20250310

REACTIONS (7)
  - Sepsis [Fatal]
  - Enterobacter infection [Fatal]
  - Septic shock [Fatal]
  - Enterocolitis [Unknown]
  - Fluid retention [Unknown]
  - Cytokine release syndrome [Unknown]
  - Immune effector cell-associated neurotoxicity syndrome [Recovering/Resolving]

NARRATIVE: CASE EVENT DATE: 20250313
